FAERS Safety Report 9122764 (Version 1)
Quarter: 2013Q1

REPORT INFORMATION
  Report Type: Spontaneous
  Country: US (occurrence: US)
  Receive Date: 20130227
  Receipt Date: 20130227
  Transmission Date: 20140127
  Serious: No
  Sender: FDA-Public Use
  Company Number: US-BAYER-2013-020887

PATIENT
  Age: 76 Year
  Sex: Female
  Weight: 56.24 kg

DRUGS (2)
  1. ALEVE CAPLET/TABLET,MIDOL EXTENDED RELIEF CAPLET [Suspect]
     Indication: BACK PAIN
     Dosage: 2 DF, ONCE
     Route: 048
     Dates: start: 20130207, end: 20130207
  2. TAPAZOLE [Concomitant]

REACTIONS (3)
  - Wrong technique in drug usage process [None]
  - Glossodynia [Recovered/Resolved]
  - Throat irritation [Not Recovered/Not Resolved]
